FAERS Safety Report 5220120-1 (Version None)
Quarter: 2007Q1

REPORT INFORMATION
  Report Type: 
  Country: None (occurrence: None)
  Receive Date: 20070124
  Receipt Date: 20070124
  Transmission Date: 20070707
  Serious: Yes (Life-Threatening, Hospitalization, Other)
  Sender: FDA-Public Use
  Company Number: None

PATIENT
  Age: 78 Year
  Sex: Female
  Weight: 52.1637 kg

DRUGS (2)
  1. MEPRON [Suspect]
     Indication: PROPHYLAXIS
     Dosage: 2TSP DAILY PO
     Route: 048
     Dates: start: 20061206, end: 20061214
  2. MEPRON [Suspect]
     Indication: SARCOIDOSIS
     Dosage: 2TSP DAILY PO
     Route: 048
     Dates: start: 20061206, end: 20061214

REACTIONS (4)
  - DRUG HYPERSENSITIVITY [None]
  - HAEMOGLOBIN DECREASED [None]
  - PLATELET COUNT DECREASED [None]
  - RECTAL HAEMORRHAGE [None]
